FAERS Safety Report 4775493-0 (Version None)
Quarter: 2005Q3

REPORT INFORMATION
  Report Type: 
  Country: None (occurrence: None)
  Receive Date: 20050920
  Receipt Date: 20050725
  Transmission Date: 20060218
  Serious: Yes (Disabling, Other)
  Sender: FDA-Public Use
  Company Number: 2005108870

PATIENT
  Sex: Male

DRUGS (1)
  1. VIAGRA [Suspect]
     Indication: ILL-DEFINED DISORDER
     Dates: start: 20030726

REACTIONS (3)
  - BLINDNESS [None]
  - OPTIC ISCHAEMIC NEUROPATHY [None]
  - VISUAL DISTURBANCE [None]
